FAERS Safety Report 5449006-4 (Version None)
Quarter: 2007Q3

REPORT INFORMATION
  Report Type: 
  Country: None (occurrence: None)
  Receive Date: 20070803
  Receipt Date: 20070524
  Transmission Date: 20080115
  Serious: No
  Sender: FDA-Public Use
  Company Number: 200711291BWH

PATIENT
  Age: 68 Year
  Sex: Male

DRUGS (5)
  1. NEXAVAR [Suspect]
     Dosage: SEE IMAGE
     Route: 048
     Dates: start: 20060101
  2. NORVASC [Concomitant]
  3. LISINOPRIL [Concomitant]
  4. GEMZAR [Concomitant]
  5. AVASTIN [Concomitant]

REACTIONS (4)
  - DYSGEUSIA [None]
  - HEADACHE [None]
  - HYPERTENSION [None]
  - PAIN IN EXTREMITY [None]
